FAERS Safety Report 6010879-8 (Version None)
Quarter: 2008Q4

REPORT INFORMATION
  Report Type: 
  Country: None (occurrence: None)
  Receive Date: 20081216
  Receipt Date: 20081204
  Transmission Date: 20090506
  Serious: Yes (Death, Hospitalization)
  Sender: FDA-Public Use
  Company Number: 2008US003295

PATIENT
  Age: 57 Year
  Sex: Male

DRUGS (5)
  1. PROGRAF [Suspect]
     Indication: LIVER TRANSPLANT
     Dosage: 2 MG, BID, ORAL
     Route: 048
     Dates: end: 20081118
  2. BELATACEPT             (BELATACEPT) [Suspect]
     Indication: LIVER TRANSPLANT
     Dosage: IV NOS
     Route: 042
     Dates: start: 20080715, end: 20081007
  3. CELLCEPT [Suspect]
     Indication: LIVER TRANSPLANT
     Dosage: 3000 MG, UID/QD, ORAL
     Route: 048
     Dates: start: 20080715
  4. PREDNISONE [Concomitant]
  5. VALCYTE [Concomitant]

REACTIONS (15)
  - ANURIA [None]
  - BLOOD CULTURE POSITIVE [None]
  - CIRCULATORY COLLAPSE [None]
  - GRAFT LOSS [None]
  - HAEMODYNAMIC INSTABILITY [None]
  - HEPATIC FAILURE [None]
  - HEPATITIS C [None]
  - HYPERBILIRUBINAEMIA [None]
  - HYPOTENSION [None]
  - LACTOBACILLUS INFECTION [None]
  - RENAL FAILURE [None]
  - SEPSIS [None]
  - SHOCK [None]
  - STAPHYLOCOCCAL INFECTION [None]
  - WHITE BLOOD CELL COUNT INCREASED [None]
